FAERS Safety Report 24150283 (Version 2)
Quarter: 2024Q3

REPORT INFORMATION
  Report Type: Spontaneous
  Country: CH (occurrence: CH)
  Receive Date: 20240730
  Receipt Date: 20240810
  Transmission Date: 20241017
  Serious: Yes (Hospitalization)
  Sender: TEVA
  Company Number: CH-TEVA-VS-3223397

PATIENT
  Age: 6 Year
  Sex: Female

DRUGS (1)
  1. ALBUTEROL [Suspect]
     Active Substance: ALBUTEROL
     Indication: Hypoventilation
     Dosage: RECEIVED 12 PUSHES; 100?G/DOSE
     Route: 055

REACTIONS (1)
  - Familial periodic paralysis [Recovered/Resolved]
